FAERS Safety Report 6204485-X (Version None)
Quarter: 2009Q2

REPORT INFORMATION
  Report Type: 
  Country: None (occurrence: None)
  Receive Date: 20090527
  Receipt Date: 20090522
  Transmission Date: 20091009
  Serious: Yes (Other)
  Sender: FDA-Public Use
  Company Number: GB-PFIZER INC-2009208414

PATIENT

DRUGS (2)
  1. LIPITOR [Suspect]
     Dosage: 10 MG, 1X/DAY
  2. SLOZEM [Interacting]
     Indication: CARDIAC DISORDER
     Dosage: UNK
     Dates: start: 20090415

REACTIONS (2)
  - CARDIAC ENZYMES INCREASED [None]
  - DRUG INTERACTION [None]
